FAERS Safety Report 8598382-2 (Version None)
Quarter: 2012Q3

REPORT INFORMATION
  Report Type: 
  Country: None (occurrence: None)
  Receive Date: 20120816
  Receipt Date: 20120802
  Transmission Date: 20120928
  Serious: Yes (Other)
  Sender: FDA-Public Use
  Company Number: US-PFIZER INC-2012190642

PATIENT
  Age: 87 Year
  Sex: Female

DRUGS (3)
  1. PROCARDIA XL [Suspect]
     Indication: HYPERTENSION
     Dosage: 30 MG, AS NEEDED
     Route: 048
     Dates: start: 20110901
  2. PROCARDIA XL [Suspect]
     Dosage: 30 MG, 1X/DAY
     Route: 048
     Dates: start: 20120725
  3. ATENOLOL [Suspect]
     Indication: HYPERTENSION
     Dosage: 25 MG, 2X/DAY

REACTIONS (6)
  - HEADACHE [None]
  - HYPERTENSION [None]
  - NAUSEA [None]
  - DIZZINESS [None]
  - MELAENA [None]
  - ABDOMINAL PAIN UPPER [None]
